FAERS Safety Report 10013660 (Version 3)
Quarter: 2014Q2

REPORT INFORMATION
  Report Type: Report from Study
  Country: JP (occurrence: JP)
  Receive Date: 20140315
  Receipt Date: 20140516
  Transmission Date: 20141212
  Serious: Yes (Hospitalization)
  Sender: FDA-Public Use
  Company Number: JP-009507513-1403JPN005402

PATIENT
  Age: 71 Year
  Sex: Male
  Weight: 55 kg

DRUGS (5)
  1. GLACTIV [Suspect]
     Indication: TYPE 2 DIABETES MELLITUS
     Dosage: 50 MG, QD, STRENGTH-12.5, 25, 50,100 MG
     Route: 048
     Dates: start: 20110203, end: 20131028
  2. GLACTIV [Suspect]
     Dosage: 50 MG, QD,  STRENGTH-12.5, 25, 50,100 MG
     Route: 048
     Dates: start: 20131031
  3. LIVALO [Concomitant]
     Dosage: UNK
     Dates: end: 20131220
  4. SEIBULE [Concomitant]
     Dosage: UNK
     Dates: end: 20131028
  5. SEIBULE [Concomitant]
     Dosage: UNK
     Dates: start: 20131031

REACTIONS (2)
  - Colon cancer [Recovered/Resolved]
  - Glucose urine [Not Recovered/Not Resolved]
